FAERS Safety Report 8230457-X (Version None)
Quarter: 2012Q1

REPORT INFORMATION
  Report Type: 
  Country: None (occurrence: None)
  Receive Date: 20120323
  Receipt Date: 20120319
  Transmission Date: 20120608
  Serious: Yes (Other)
  Sender: FDA-Public Use
  Company Number: US-TEVA-328623USA

PATIENT
  Sex: Female

DRUGS (3)
  1. AZITHROMYCIN [Suspect]
  2. PREDNISONE TAB [Suspect]
  3. AMOXICILLIN [Suspect]

REACTIONS (5)
  - FATIGUE [None]
  - CHRONIC MYELOID LEUKAEMIA [None]
  - ARTHRALGIA [None]
  - CANDIDIASIS [None]
  - BACK PAIN [None]
